FAERS Safety Report 8239303-1 (Version None)
Quarter: 2012Q1

REPORT INFORMATION
  Report Type: 
  Country: None (occurrence: None)
  Receive Date: 20120328
  Receipt Date: 20120316
  Transmission Date: 20120608
  Serious: Yes (Other)
  Sender: FDA-Public Use
  Company Number: BR-AMGEN-BRASP2012018073

PATIENT
  Age: 45 Year
  Sex: Female
  Weight: 65 kg

DRUGS (7)
  1. ENBREL [Suspect]
     Indication: RHEUMATOID ARTHRITIS
     Dosage: 50 MG, ONCE WEEKLY
     Route: 058
     Dates: start: 20120101, end: 20120309
  2. ENBREL [Suspect]
     Dosage: 50 MG, ONCE WEEKLY
     Route: 058
     Dates: start: 20111201
  3. PRELONE [Concomitant]
     Dosage: 10 MG, 1X/DAY
  4. TECNOMET [Concomitant]
     Dosage: 1.25 MG, 1X/DAY
  5. TECNOMET [Concomitant]
     Indication: RHEUMATOID ARTHRITIS
     Dosage: UNK
  6. REUQUINOL [Concomitant]
     Dosage: 200 MG, 1X/DAY
  7. PRELONE [Concomitant]
     Indication: RHEUMATOID ARTHRITIS
     Dosage: UNK

REACTIONS (7)
  - LIP DRY [None]
  - SNEEZING [None]
  - NASAL CONGESTION [None]
  - DYSPNOEA [None]
  - RHINITIS [None]
  - INFLUENZA [None]
  - PNEUMONIA [None]
